FAERS Safety Report 19873362 (Version 4)
Quarter: 2021Q4

REPORT INFORMATION
  Report Type: Spontaneous
  Country: DE (occurrence: DE)
  Receive Date: 20210922
  Receipt Date: 20211011
  Transmission Date: 20220303
  Serious: Yes (Hospitalization, Disabling, Other)
  Sender: FDA-Public Use
  Company Number: DE-ROCHE-2815247

PATIENT
  Age: 49 Year
  Sex: Male
  Weight: 85 kg

DRUGS (38)
  1. FLUDARABINE [Suspect]
     Active Substance: FLUDARABINE PHOSPHATE
     Indication: Chronic lymphocytic leukaemia
     Dosage: 49.5 MILLIGRAM
     Route: 065
     Dates: start: 20141118, end: 20150407
  2. FLUDARABINE [Suspect]
     Active Substance: FLUDARABINE PHOSPHATE
     Dosage: 49.7 MILLIGRAM
     Route: 042
     Dates: start: 20150312
  3. FLUDARABINE [Suspect]
     Active Substance: FLUDARABINE PHOSPHATE
     Dosage: 49.5 MILLIGRAM
     Route: 042
     Dates: start: 20141119
  4. FLUDARABINE [Suspect]
     Active Substance: FLUDARABINE PHOSPHATE
     Dosage: 49.5 MILLIGRAM
     Route: 042
     Dates: start: 20141118
  5. FLUDARABINE [Suspect]
     Active Substance: FLUDARABINE PHOSPHATE
     Dosage: 49.8 MILLIGRAM
     Route: 042
     Dates: start: 20141216
  6. FLUDARABINE [Suspect]
     Active Substance: FLUDARABINE PHOSPHATE
     Dosage: 50 MILLIGRAM
     Route: 042
     Dates: start: 20151113
  7. FLUDARABINE [Suspect]
     Active Substance: FLUDARABINE PHOSPHATE
     Dosage: 50 MILLIGRAM
     Route: 042
     Dates: start: 20151114
  8. FLUDARABINE [Suspect]
     Active Substance: FLUDARABINE PHOSPHATE
     Dosage: 50 MILLIGRAM
     Route: 042
     Dates: start: 20151115
  9. FLUDARABINE [Suspect]
     Active Substance: FLUDARABINE PHOSPHATE
     Dosage: 49.7 MILLIGRAM
     Route: 042
     Dates: start: 20150310
  10. FLUDARABINE [Suspect]
     Active Substance: FLUDARABINE PHOSPHATE
     Dosage: 50 MILLIGRAM
     Route: 042
     Dates: start: 20150114
  11. FLUDARABINE [Suspect]
     Active Substance: FLUDARABINE PHOSPHATE
     Dosage: 25 MG/M2
     Route: 042
     Dates: start: 20150407
  12. FLUDARABINE [Suspect]
     Active Substance: FLUDARABINE PHOSPHATE
     Dosage: 49.7 MILLIGRAM (25 MG/M2)
     Route: 042
     Dates: start: 20150313
  13. FLUDARABINE [Suspect]
     Active Substance: FLUDARABINE PHOSPHATE
     Dosage: 50 MILLIGRAM
     Route: 042
     Dates: start: 20150115
  14. FLUDARABINE [Suspect]
     Active Substance: FLUDARABINE PHOSPHATE
     Dosage: 50 MILLIGRAM
     Route: 042
     Dates: start: 20150113
  15. FLUDARABINE [Suspect]
     Active Substance: FLUDARABINE PHOSPHATE
     Dosage: 25 MG/M2
     Route: 042
     Dates: start: 201502
  16. FLUDARABINE [Suspect]
     Active Substance: FLUDARABINE PHOSPHATE
     Dosage: UNK
     Dates: start: 20141118, end: 20150407
  17. OBINUTUZUMAB [Suspect]
     Active Substance: OBINUTUZUMAB
     Indication: Chronic lymphocytic leukaemia
     Dosage: 100 UNK
     Route: 042
     Dates: start: 20141118, end: 20150407
  18. OBINUTUZUMAB [Suspect]
     Active Substance: OBINUTUZUMAB
     Dosage: 1000 MILLIGRAM
     Route: 042
     Dates: start: 20151113
  19. OBINUTUZUMAB [Suspect]
     Active Substance: OBINUTUZUMAB
     Dosage: 1000 MILLIGRAM
     Route: 042
     Dates: start: 20150407
  20. OBINUTUZUMAB [Suspect]
     Active Substance: OBINUTUZUMAB
     Dosage: 1000 MILLIGRAM
     Route: 042
     Dates: start: 201502
  21. OBINUTUZUMAB [Suspect]
     Active Substance: OBINUTUZUMAB
     Dosage: 1000 MILLIGRAM
     Route: 042
     Dates: start: 20150310
  22. OBINUTUZUMAB [Suspect]
     Active Substance: OBINUTUZUMAB
     Dosage: 1000 MILLIGRAM
     Route: 042
     Dates: start: 20141216
  23. PRIVIGEN [Suspect]
     Active Substance: HUMAN IMMUNOGLOBULIN G
     Indication: Chronic lymphocytic leukaemia
     Dosage: 20 GRAM
     Route: 065
     Dates: start: 20160323
  24. CYCLOPHOSPHAMIDE [Suspect]
     Active Substance: CYCLOPHOSPHAMIDE
     Indication: Chronic lymphocytic leukaemia
     Dosage: UNK
     Route: 065
     Dates: start: 20141118, end: 20150407
  25. CYCLOPHOSPHAMIDE [Suspect]
     Active Substance: CYCLOPHOSPHAMIDE
     Dosage: 498 MILLIGRAM
     Route: 042
     Dates: start: 20141216
  26. CYCLOPHOSPHAMIDE [Suspect]
     Active Substance: CYCLOPHOSPHAMIDE
     Dosage: 495 MILLIGRAM
     Route: 042
     Dates: start: 20141119
  27. CYCLOPHOSPHAMIDE [Suspect]
     Active Substance: CYCLOPHOSPHAMIDE
     Dosage: 495 MILLIGRAM
     Route: 042
     Dates: start: 20141118
  28. URSODIOL [Suspect]
     Active Substance: URSODIOL
     Indication: Drug-induced liver injury
     Dosage: UNK
     Route: 065
     Dates: start: 201602, end: 201603
  29. KEPPRA [Suspect]
     Active Substance: LEVETIRACETAM
     Indication: Epilepsy
     Dosage: UNK
     Route: 065
     Dates: start: 20160727, end: 20170710
  30. KIOVIG [Suspect]
     Active Substance: HUMAN IMMUNOGLOBULIN G
     Indication: Immunoglobulins decreased
     Dosage: UNK
  31. CIPROFLOXACIN [Concomitant]
     Active Substance: CIPROFLOXACIN
     Dosage: 500 MILLIGRAM
  32. AMPHOTERICIN B [Concomitant]
     Active Substance: AMPHOTERICIN B
     Dosage: 4 DOSAGE FORM, QD
  33. AMPHOTERICIN B [Concomitant]
     Active Substance: AMPHOTERICIN B
     Dosage: 1 UNK
  34. PREDNISOLONE SODIUM SUCCINATE [Concomitant]
     Active Substance: PREDNISOLONE SODIUM SUCCINATE
     Dosage: UNK
     Dates: start: 201411
  35. CALCIUM ACETATE\MAGNESIUM ACETATE\POTASSIUM ACETATE\SODIUM ACETATE\SOD [Concomitant]
     Active Substance: CALCIUM ACETATE\MAGNESIUM ACETATE\POTASSIUM ACETATE\SODIUM ACETATE\SODIUM CHLORI
     Dosage: UNK
  36. CHOLECALCIFEROL [Concomitant]
     Active Substance: CHOLECALCIFEROL
     Dosage: 20000 INTERNATIONAL UNIT, QD
  37. PANTOPRAZOLE [Concomitant]
     Active Substance: PANTOPRAZOLE
     Dosage: UNK
  38. ALLOPURINOL [Concomitant]
     Active Substance: ALLOPURINOL
     Dosage: 300 MILLIGRAM, QD

REACTIONS (47)
  - Large intestinal stenosis [Recovered/Resolved]
  - Respiratory failure [Unknown]
  - Ill-defined disorder [Unknown]
  - Varicella zoster virus infection [Recovered/Resolved]
  - Colitis [Recovered/Resolved]
  - Epilepsy [Not Recovered/Not Resolved]
  - Encephalitis [Unknown]
  - Retinitis viral [Recovered/Resolved]
  - Necrotising retinitis [Not Recovered/Not Resolved]
  - Blindness unilateral [Not Recovered/Not Resolved]
  - Toxoplasmosis [Recovered/Resolved with Sequelae]
  - Hemiparesis [Recovering/Resolving]
  - Central nervous system lesion [Not Recovered/Not Resolved]
  - Drug-induced liver injury [Not Recovered/Not Resolved]
  - Syncope [Unknown]
  - Bacterial disease carrier [Unknown]
  - Basal cell carcinoma [Not Recovered/Not Resolved]
  - Myelosuppression [Unknown]
  - Neutropenia [Unknown]
  - Febrile neutropenia [Unknown]
  - Leukopenia [Unknown]
  - Cytopenia [Unknown]
  - Pneumonia [Unknown]
  - Gallbladder polyp [Unknown]
  - Pruritus allergic [Unknown]
  - Drug hypersensitivity [Unknown]
  - Pain [Unknown]
  - Abdominal pain [Unknown]
  - Blood pressure increased [Recovered/Resolved]
  - Weight decreased [Unknown]
  - Rectal tenesmus [Unknown]
  - Fungal infection [Unknown]
  - Blepharospasm [Recovered/Resolved]
  - Liver function test increased [Not Recovered/Not Resolved]
  - Abdominal pain upper [Unknown]
  - Folliculitis [Unknown]
  - Impulse-control disorder [Recovered/Resolved]
  - Cataract subcapsular [Unknown]
  - Nephropathy toxic [Unknown]
  - Dizziness [Unknown]
  - Dermatitis atopic [Unknown]
  - Mucosal disorder [Unknown]
  - Pyrexia [Recovered/Resolved]
  - Nausea [Unknown]
  - Hypersensitivity [Recovered/Resolved]
  - Diarrhoea [Recovered/Resolved]
  - Cough [Recovered/Resolved]

NARRATIVE: CASE EVENT DATE: 20141101
